FAERS Safety Report 7553406-6 (Version None)
Quarter: 2011Q2

REPORT INFORMATION
  Report Type: 
  Country: None (occurrence: None)
  Receive Date: 20110617
  Receipt Date: 20110611
  Transmission Date: 20111010
  Serious: Yes (Other)
  Sender: FDA-Public Use
  Company Number: AU-SHIRE-ALL1-2011-01825

PATIENT
  Age: 26 Year
  Sex: Female

DRUGS (1)
  1. AGRYLIN [Suspect]
     Indication: PRODUCT USED FOR UNKNOWN INDICATION
     Dosage: UNK, UNKNOWN
     Route: 048

REACTIONS (2)
  - URTICARIA [None]
  - LARYNGEAL OEDEMA [None]
